FAERS Safety Report 8837704 (Version 2)
Quarter: 2013Q4

REPORT INFORMATION
  Report Type: Report from Study
  Country: US (occurrence: US)
  Receive Date: 20121012
  Receipt Date: 20131018
  Transmission Date: 20140711
  Serious: Yes (Hospitalization)
  Sender: FDA-Public Use
  Company Number: PHEH2012US015701

PATIENT
  Age: 29 Year
  Sex: Female
  Weight: 129.25 kg

DRUGS (1)
  1. GILENYA [Suspect]
     Indication: MULTIPLE SCLEROSIS
     Dosage: 0.5 MG, QD
     Route: 048
     Dates: start: 201206

REACTIONS (3)
  - Cyst [Not Recovered/Not Resolved]
  - Neck mass [Recovered/Resolved]
  - Platelet count decreased [Not Recovered/Not Resolved]
